FAERS Safety Report 4815341-3 (Version None)
Quarter: 2005Q4

REPORT INFORMATION
  Report Type: 
  Country: None (occurrence: None)
  Receive Date: 20051027
  Receipt Date: 20051013
  Transmission Date: 20060501
  Serious: Yes (Death)
  Sender: FDA-Public Use
  Company Number: 2005RL000146

PATIENT
  Age: 88 Year

DRUGS (3)
  1. RYTHMOL [Suspect]
     Dates: end: 20040101
  2. METFORMIN HCL [Suspect]
     Dates: end: 20040101
  3. SERTRALINE HCL [Suspect]
     Dates: end: 20040101

REACTIONS (2)
  - CARDIO-RESPIRATORY ARREST [None]
  - INTENTIONAL DRUG MISUSE [None]
